FAERS Safety Report 5389409-X (Version None)
Quarter: 2007Q3

REPORT INFORMATION
  Report Type: 
  Country: None (occurrence: None)
  Receive Date: 20070717
  Receipt Date: 20070712
  Transmission Date: 20080115
  Serious: Yes (Life-Threatening, Hospitalization)
  Sender: FDA-Public Use
  Company Number: FR-ASTRAZENECA-2007CG01055

PATIENT
  Age: 30580 Day
  Sex: Female

DRUGS (6)
  1. NEXIUM [Suspect]
     Indication: GASTROOESOPHAGEAL REFLUX DISEASE
     Route: 048
     Dates: end: 20070419
  2. LIPANTHYL [Suspect]
     Indication: HYPERCHOLESTEROLAEMIA
     Route: 048
     Dates: end: 20070419
  3. BETASERC [Suspect]
     Indication: DIZZINESS
     Route: 048
     Dates: start: 20070315, end: 20070419
  4. TANGANIL [Suspect]
     Indication: DIZZINESS
     Route: 048
     Dates: start: 20070315, end: 20070419
  5. HERBAL MEDICINE [Concomitant]
  6. HOMEOPATHIC DRUGS [Concomitant]

REACTIONS (2)
  - CONVULSION [None]
  - HYPONATRAEMIA [None]
